FAERS Safety Report 6241242-2 (Version None)
Quarter: 2009Q2

REPORT INFORMATION
  Report Type: 
  Country: None (occurrence: None)
  Receive Date: 20090619
  Receipt Date: 20090619
  Transmission Date: 20091009
  Serious: Yes (Hospitalization)
  Sender: FDA-Public Use
  Company Number: None

PATIENT
  Age: 68 Year
  Sex: Male
  Weight: 89.1318 kg

DRUGS (9)
  1. TOPROL-XL [Suspect]
     Dosage: 100MG DAILY PO
     Route: 048
  2. COSPOT [Concomitant]
  3. XALATAN [Concomitant]
  4. WELCHOL [Concomitant]
  5. ASPIRIN [Concomitant]
  6. BUPROPION [Concomitant]
  7. HEPSERA [Concomitant]
  8. MULTI-VITAMIN [Concomitant]
  9. AVODART [Concomitant]

REACTIONS (2)
  - EJECTION FRACTION DECREASED [None]
  - MITRAL VALVE REPAIR [None]
